FAERS Safety Report 4330039-6 (Version None)
Quarter: 2004Q1

REPORT INFORMATION
  Report Type: 
  Country: None (occurrence: None)
  Receive Date: 20040329
  Receipt Date: 20031205
  Transmission Date: 20041129
  Serious: No
  Sender: FDA-Public Use
  Company Number: 03P-163-0231486-00

PATIENT
  Age: 60 Year
  Sex: Female
  Weight: 61.2356 kg

DRUGS (8)
  1. HUMIRA [Suspect]
     Indication: RHEUMATOID ARTHRITIS
     Dosage: 40 MG, 1 IN 2 WK; SUBCUTANEOUS
     Route: 058
     Dates: start: 20030826
  2. SULFASALAZINE [Concomitant]
  3. NAPROXEN [Concomitant]
  4. HYDROXYCHLOROQUINE PHOSPHATE [Concomitant]
  5. FOLIC ACID [Concomitant]
  6. PYRIDOSTIGMINE BROMIDE [Concomitant]
  7. HYZAAR [Concomitant]
  8. ALENDRONATE SODIUM [Concomitant]

REACTIONS (2)
  - INJECTION SITE STINGING [None]
  - MYASTHENIA GRAVIS [None]
